FAERS Safety Report 9837015 (Version 1)
Quarter: 2013Q4

REPORT INFORMATION
  Report Type: Spontaneous
  Country: US (occurrence: None)
  Receive Date: 20131121
  Receipt Date: 20131121
  Transmission Date: 20140711
  Serious: Yes (Other)
  Sender: FDA-Public Use
  Company Number: 1000048304

PATIENT
  Age: 66 Year
  Sex: Male

DRUGS (4)
  1. TUDORZA PRESSAIR [Suspect]
     Indication: CHRONIC OBSTRUCTIVE PULMONARY DISEASE
     Dosage: 400 MCG (400MCG, 2 IN 1 D) ORAL
     Route: 048
     Dates: start: 20130718, end: 201308
  2. ADVAIR (SERETIDE) (SERETIDE) [Concomitant]
  3. COMBIVENT (COMBIVENT) (COMBIVENT) [Concomitant]
  4. NORVASC (AMLODIPINE BESILATE) (AMLODIPINE BESILATE) [Concomitant]

REACTIONS (1)
  - Vision blurred [None]
